FAERS Safety Report 8141123-3 (Version None)
Quarter: 2012Q1

REPORT INFORMATION
  Report Type: 
  Country: None (occurrence: None)
  Receive Date: 20120216
  Receipt Date: 20120208
  Transmission Date: 20120608
  Serious: Yes (Hospitalization)
  Sender: FDA-Public Use
  Company Number: US-BAYER-2011-069854

PATIENT
  Age: 27 Year
  Sex: Female
  Weight: 58 kg

DRUGS (5)
  1. YAZ [Suspect]
     Indication: PREMENSTRUAL SYNDROME
     Dosage: UNK
     Dates: start: 20071019, end: 20090803
  2. YASMIN [Suspect]
     Dosage: UNK
     Dates: start: 20070901
  3. WARFARIN SODIUM [Concomitant]
  4. YAZ [Suspect]
     Indication: CONTRACEPTION
  5. COUMADIN [Concomitant]

REACTIONS (5)
  - PAINFUL RESPIRATION [None]
  - PAIN [None]
  - INJURY [None]
  - PULMONARY FIBROSIS [None]
  - PULMONARY EMBOLISM [None]
